FAERS Safety Report 16968709 (Version 1)
Quarter: 2019Q4

REPORT INFORMATION
  Report Type: Spontaneous
  Country: US (occurrence: US)
  Receive Date: 20191029
  Receipt Date: 20191029
  Transmission Date: 20200122
  Serious: Yes (Hospitalization)
  Sender: FDA-Public Use
  Company Number: US-GLAND PHARMA LIMITED-2076116

PATIENT
  Age: 21 Year
  Sex: Female

DRUGS (5)
  1. IFOSFAMIDE REGIMEN [Suspect]
     Active Substance: IFOSFAMIDE
     Route: 042
  2. DACARBAZINE. [Suspect]
     Active Substance: DACARBAZINE
     Route: 042
  3. CIMETIDINE [Concomitant]
     Active Substance: CIMETIDINE
  4. DOXORUBICIN HYDROCHLORIDE. [Suspect]
     Active Substance: DOXORUBICIN HYDROCHLORIDE
     Indication: OSTEOSARCOMA
     Route: 042
  5. IFOSFAMIDE. [Suspect]
     Active Substance: IFOSFAMIDE
     Route: 042

REACTIONS (12)
  - Blood creatinine increased [Recovering/Resolving]
  - Diarrhoea [Unknown]
  - Haematemesis [Unknown]
  - Skin exfoliation [Unknown]
  - Stomatitis [Unknown]
  - Abdominal pain [Unknown]
  - Platelet count decreased [Unknown]
  - Accidental overdose [Recovered/Resolved]
  - Nausea [Unknown]
  - Oral candidiasis [Unknown]
  - Febrile neutropenia [Unknown]
  - Hypokalaemia [Unknown]
